FAERS Safety Report 8187408-6 (Version None)
Quarter: 2012Q1

REPORT INFORMATION
  Report Type: 
  Country: None (occurrence: None)
  Receive Date: 20120306
  Receipt Date: 20120221
  Transmission Date: 20120608
  Serious: Yes (Death, Life-Threatening, Hospitalization)
  Sender: FDA-Public Use
  Company Number: DE-FRI-1000028761

PATIENT
  Sex: Male

DRUGS (11)
  1. XIMOVAN [Concomitant]
     Dosage: 7.5 MG
     Route: 048
  2. BISOPROLOL FUMARATE [Concomitant]
     Dosage: 5 MG
     Route: 048
  3. ASPIRIN [Interacting]
     Dosage: 100 MG
     Route: 048
  4. ZYPREXA [Concomitant]
     Dosage: 5 MG
     Route: 048
  5. NITRENDIPIN [Concomitant]
     Dosage: 20 MG
     Route: 048
  6. VITAMIN B-12 [Concomitant]
     Dosage: 0.143 MG
     Route: 042
  7. LYRICA [Concomitant]
     Dosage: 150 MG
     Route: 048
     Dates: start: 20110707
  8. BIFITERAL [Concomitant]
     Dosage: 10 MG
     Route: 048
     Dates: start: 20110706
  9. LISINOPRIL COMP [Concomitant]
     Dosage: 20 MG LISINOPRIL / 12.5 MG HYDROCHLOROTHIAZIDE
     Route: 048
  10. BUPRENORPHINE [Concomitant]
     Dosage: 480 MCG
     Route: 048
  11. CITALOPRAM HYDROBROMIDE [Suspect]
     Dosage: 20 MG
     Route: 048

REACTIONS (7)
  - DYSPNOEA [None]
  - DRUG INTERACTION [None]
  - GASTROINTESTINAL HAEMORRHAGE [None]
  - MELAENA [None]
  - MYOCARDIAL INFARCTION [None]
  - CHEST PAIN [None]
  - PALLOR [None]
